FAERS Safety Report 7464601-9 (Version None)
Quarter: 2011Q2

REPORT INFORMATION
  Report Type: 
  Country: None (occurrence: None)
  Receive Date: 20110509
  Receipt Date: 20110426
  Transmission Date: 20111010
  Serious: Yes (Hospitalization)
  Sender: FDA-Public Use
  Company Number: JP-NOVOPROD-327341

PATIENT
  Age: 69 Year
  Sex: Female
  Weight: 40 kg

DRUGS (7)
  1. INSULIN [Suspect]
     Indication: TYPE 2 DIABETES MELLITUS
     Dosage: 11 U, QD
     Route: 058
  2. ACINON [Concomitant]
     Dosage: 150 MG, QD
     Route: 048
  3. INSULIN [Suspect]
     Dosage: 45 U, QD
     Dates: start: 20100803
  4. DIOVAN [Concomitant]
     Dosage: 80 MG, QD
     Route: 048
  5. ASPIRIN [Concomitant]
     Dosage: 100 MG, QD
     Route: 048
  6. MYSLEE [Concomitant]
     Dosage: UNK
     Route: 048
  7. GLUCOBAY [Concomitant]
     Dosage: 50 MG, QD
     Route: 048

REACTIONS (4)
  - INTENTIONAL OVERDOSE [None]
  - HYPOGLYCAEMIC UNCONSCIOUSNESS [None]
  - ANTI-INSULIN ANTIBODY POSITIVE [None]
  - SUICIDE ATTEMPT [None]
